FAERS Safety Report 8932501 (Version 1)
Quarter: 2012Q4

REPORT INFORMATION
  Report Type: Spontaneous
  Country: US (occurrence: None)
  Receive Date: 20121126
  Receipt Date: 20121126
  Transmission Date: 20130627
  Serious: Yes (Disabling)
  Sender: FDA-Public Use
  Company Number: None

PATIENT
  Age: 69 Year
  Sex: Female
  Weight: 108.86 kg

DRUGS (1)
  1. LEVIAUIN 500 MG LUPIN [Suspect]
     Indication: SINUS INFECTION
     Dosage: 1 daily  500  mg  10  day   mouth
     Route: 048
     Dates: start: 20120402, end: 20120412

REACTIONS (3)
  - Vision blurred [None]
  - Visual acuity reduced [None]
  - Retinal injury [None]
